FAERS Safety Report 5347052-2 (Version None)
Quarter: 2007Q2

REPORT INFORMATION
  Report Type: 
  Country: None (occurrence: None)
  Receive Date: 20070604
  Receipt Date: 20070524
  Transmission Date: 20071010
  Serious: Yes (Hospitalization, Other)
  Sender: FDA-Public Use
  Company Number: WAES 0705USA04832

PATIENT
  Age: 78 Year
  Sex: Female
  Weight: 54.8852 kg

DRUGS (18)
  1. FOSAMAX [Suspect]
     Dosage: TOP
     Route: 061
  2. SUNITINIB MALATE [Suspect]
     Indication: SQUAMOUS CELL CARCINOMA
     Dates: start: 20070221
  3. DIGITEK [Suspect]
  4. HYDROCHLOROTHIAZIDE [Suspect]
  5. GLUCOSAMINE [Suspect]
  6. VITAMINS (UNSPECIFIED) UNK [Suspect]
  7. OASIS MOUTHWASH UNK [Suspect]
  8. OS-CAL UNK [Suspect]
  9. BIOTENE [Suspect]
  10. HYDROCODONE BITARTRATE [Suspect]
  11. LISINOPRIL [Suspect]
  12. LEVOTHYROXINE SODIUM [Suspect]
  13. LIPITOR [Suspect]
  14. ISOSORBIDE DINITRATE [Suspect]
  15. LORAZEPAM [Suspect]
  16. OMEPRAZOLE [Suspect]
  17. CORTISONE ACETATE INJ [Suspect]
  18. OMEGA-3 MARINE TRIGLYCERIDES UNK [Suspect]

REACTIONS (15)
  - ALANINE AMINOTRANSFERASE INCREASED [None]
  - ASPARTATE AMINOTRANSFERASE INCREASED [None]
  - ASTHENIA [None]
  - BLOOD AMYLASE DECREASED [None]
  - BLOOD BILIRUBIN INCREASED [None]
  - BLOOD CHLORIDE DECREASED [None]
  - BLOOD GLUCOSE INCREASED [None]
  - BLOOD SODIUM DECREASED [None]
  - CHOLECYSTITIS [None]
  - CHOLELITHIASIS [None]
  - FATIGUE [None]
  - LETHARGY [None]
  - LIPASE INCREASED [None]
  - MALAISE [None]
  - VOMITING [None]
